FAERS Safety Report 6872274-9 (Version None)
Quarter: 2010Q3

REPORT INFORMATION
  Report Type: 
  Country: None (occurrence: None)
  Receive Date: 20100723
  Receipt Date: 20100715
  Transmission Date: 20110219
  Serious: Yes (Hospitalization)
  Sender: FDA-Public Use
  Company Number: JP-ROCHE-715855

PATIENT
  Sex: Female

DRUGS (3)
  1. ACTEMRA [Suspect]
     Indication: RHEUMATOID ARTHRITIS
     Dosage: FORM: INJECTION
     Route: 041
     Dates: start: 20081101
  2. ACTEMRA [Suspect]
     Dosage: FORM: INJECTION
     Route: 041
     Dates: start: 20100222
  3. ACTEMRA [Suspect]
     Dosage: FORM: INJECTION, DRUG DISCONTINUED.
     Route: 041
     Dates: start: 20100419, end: 20100419

REACTIONS (2)
  - VERTIGO [None]
  - VOMITING [None]
